FAERS Safety Report 25538639 (Version 1)
Quarter: 2025Q3

REPORT INFORMATION
  Report Type: Spontaneous
  Country: US (occurrence: US)
  Receive Date: 20250710
  Receipt Date: 20250710
  Transmission Date: 20251021
  Serious: Yes (Hospitalization, Other)
  Sender: ANI
  Company Number: US-ANIPHARMA-2025-US-031416

PATIENT
  Age: 88 Year
  Sex: Male
  Weight: 68.04 kg

DRUGS (15)
  1. CORTICOTROPIN [Suspect]
     Active Substance: CORTICOTROPIN
     Indication: Arthritis
     Route: 058
     Dates: start: 202501
  2. NITROGLYCERIN [Concomitant]
     Active Substance: NITROGLYCERIN
  3. PANTOPRAZOLE [Concomitant]
     Active Substance: PANTOPRAZOLE
  4. POTASSIUM [Concomitant]
     Active Substance: POTASSIUM
  5. TAMSULOSIN [Concomitant]
     Active Substance: TAMSULOSIN
  6. TORSEMIDE [Concomitant]
     Active Substance: TORSEMIDE
  7. VALSARTAN [Concomitant]
     Active Substance: VALSARTAN
  8. ACETAMINOPHEN [Concomitant]
     Active Substance: ACETAMINOPHEN
  9. ATORVASTATIN [Concomitant]
     Active Substance: ATORVASTATIN
  10. CARVEDILOL [Concomitant]
     Active Substance: CARVEDILOL
  11. CLOPIDOGREL [Concomitant]
     Active Substance: CLOPIDOGREL BISULFATE
  12. FEXOFENADINE [Concomitant]
     Active Substance: FEXOFENADINE HYDROCHLORIDE
  13. FINASTERIDE [Concomitant]
     Active Substance: FINASTERIDE
  14. ISOSORBIDE [Concomitant]
     Active Substance: ISOSORBIDE
  15. LATANOPROST [Concomitant]
     Active Substance: LATANOPROST

REACTIONS (4)
  - Myocardial infarction [Recovered/Resolved]
  - Stent placement [Unknown]
  - Atrial fibrillation [Unknown]
  - Product use in unapproved indication [Not Recovered/Not Resolved]

NARRATIVE: CASE EVENT DATE: 20250101
